FAERS Safety Report 12208800 (Version 1)
Quarter: 2016Q1

REPORT INFORMATION
  Report Type: Spontaneous
  Country: US (occurrence: US)
  Receive Date: 20160324
  Receipt Date: 20160324
  Transmission Date: 20160526
  Serious: No
  Sender: FDA-Public Use
  Company Number: US-PFIZER INC-2016066699

PATIENT
  Age: 59 Year
  Sex: Female
  Weight: 111 kg

DRUGS (2)
  1. PROTONIX [Suspect]
     Active Substance: PANTOPRAZOLE SODIUM
     Indication: GASTROOESOPHAGEAL REFLUX DISEASE
     Dosage: UNK UNK, 2X/DAY
  2. PROTONIX [Suspect]
     Active Substance: PANTOPRAZOLE SODIUM
     Dosage: UNK, 1X/DAY

REACTIONS (4)
  - Sciatic nerve injury [Unknown]
  - Intervertebral disc protrusion [Unknown]
  - Intentional product misuse [Unknown]
  - Neuralgia [Unknown]
